FAERS Safety Report 16266344 (Version 1)
Quarter: 2019Q2

REPORT INFORMATION
  Report Type: Spontaneous
  Country: US (occurrence: US)
  Receive Date: 20190502
  Receipt Date: 20190502
  Transmission Date: 20190711
  Serious: Yes (Other)
  Sender: FDA-Public Use
  Company Number: US-ASTRAZENECA-2019SE65000

PATIENT
  Age: 20851 Day
  Sex: Male

DRUGS (4)
  1. BYDUREON BCISE [Suspect]
     Active Substance: EXENATIDE
     Indication: TYPE 2 DIABETES MELLITUS
     Route: 065
  2. BYDUREON BCISE [Suspect]
     Active Substance: EXENATIDE
     Indication: TYPE 2 DIABETES MELLITUS
     Route: 065
     Dates: end: 20190309
  3. OZEMPIC [Concomitant]
     Active Substance: SEMAGLUTIDE
  4. BYDUREON [Suspect]
     Active Substance: EXENATIDE
     Indication: TYPE 2 DIABETES MELLITUS
     Route: 065

REACTIONS (5)
  - Abdominal discomfort [Unknown]
  - Lipase increased [Recovering/Resolving]
  - Pancreatitis [Unknown]
  - Nausea [Unknown]
  - Amylase increased [Recovering/Resolving]

NARRATIVE: CASE EVENT DATE: 20190410
